FAERS Safety Report 14315636 (Version 1)
Quarter: 2017Q4

REPORT INFORMATION
  Report Type: Spontaneous
  Country: US (occurrence: US)
  Receive Date: 20171221
  Receipt Date: 20171221
  Transmission Date: 20180321
  Serious: Yes (Hospitalization, Disabling)
  Sender: FDA-Public Use
  Company Number: US-SA-2017SA252554

PATIENT
  Sex: Female

DRUGS (2)
  1. LANTUS SOLOSTAR [Suspect]
     Active Substance: INSULIN GLARGINE
     Indication: TYPE 2 DIABETES MELLITUS
     Route: 051
     Dates: start: 2010
  2. SOLOSTAR [Suspect]
     Active Substance: DEVICE
     Dates: start: 2010

REACTIONS (11)
  - Dehydration [Unknown]
  - Eye disorder [Unknown]
  - Blood glucose decreased [Unknown]
  - Disability [Unknown]
  - Somnolence [Unknown]
  - Blood magnesium decreased [Unknown]
  - Unevaluable event [Unknown]
  - Cardiac disorder [Unknown]
  - Blood glucose increased [Unknown]
  - Device issue [Unknown]
  - Product use issue [Unknown]
